FAERS Safety Report 6570113-7 (Version None)
Quarter: 2010Q1

REPORT INFORMATION
  Report Type: 
  Country: None (occurrence: None)
  Receive Date: 20100202
  Receipt Date: 20100202
  Transmission Date: 20100710
  Serious: Yes (Hospitalization, Other)
  Sender: FDA-Public Use
  Company Number: None

PATIENT
  Age: 19 Year
  Sex: Female
  Weight: 46.2669 kg

DRUGS (2)
  1. CLARITHROMYCIN 500MG APOTEX USA [Suspect]
     Indication: BRONCHITIS
     Dosage: 1 TABLET TWICE DAILY PO
     Route: 048
  2. ADVAIR HFA [Suspect]
     Indication: ASTHMA
     Dosage: 2 PUFFS TWICE DAILY OTHER, YEARS
     Route: 050

REACTIONS (4)
  - CONDUCTION DISORDER [None]
  - DRUG INTERACTION [None]
  - PALPITATIONS [None]
  - TACHYCARDIA [None]
